FAERS Safety Report 9788750 (Version 1)
Quarter: 2013Q4

REPORT INFORMATION
  Report Type: Spontaneous
  Country: RU (occurrence: RU)
  Receive Date: 20131230
  Receipt Date: 20131230
  Transmission Date: 20140711
  Serious: Yes (Other)
  Sender: FDA-Public Use
  Company Number: PHHY2013RU152285

PATIENT
  Sex: Male

DRUGS (1)
  1. TRILEPTAL [Suspect]
     Route: 048

REACTIONS (2)
  - Epilepsy [Unknown]
  - Drug ineffective [Unknown]
